FAERS Safety Report 10073863 (Version 2)
Quarter: 2014Q2

REPORT INFORMATION
  Report Type: Spontaneous
  Country: US (occurrence: US)
  Receive Date: 20140413
  Receipt Date: 20140518
  Transmission Date: 20141212
  Serious: No
  Sender: FDA-Public Use
  Company Number: US-009507513-1404USA005000

PATIENT
  Sex: Male

DRUGS (1)
  1. JANUVIA [Suspect]
     Indication: BLOOD CHOLESTEROL DECREASED
     Dosage: 100 MG, QD
     Route: 048
     Dates: start: 20131125

REACTIONS (3)
  - Peripheral swelling [Unknown]
  - Drug administration error [Unknown]
  - Pain in extremity [Unknown]
